FAERS Safety Report 21782875 (Version 1)
Quarter: 2022Q4

REPORT INFORMATION
  Report Type: Spontaneous
  Country: GB (occurrence: GB)
  Receive Date: 20221227
  Receipt Date: 20221227
  Transmission Date: 20230113
  Serious: Yes (Other)
  Sender: FDA-Public Use
  Company Number: None

PATIENT
  Age: 70 Year
  Sex: Male
  Weight: 75 kg

DRUGS (20)
  1. SILDENAFIL [Suspect]
     Active Substance: SILDENAFIL
     Indication: Product used for unknown indication
     Dosage: AS DIRECTED
     Route: 065
     Dates: start: 20220816
  2. BECLOMETHASONE DIPROPIONATE [Concomitant]
     Active Substance: BECLOMETHASONE DIPROPIONATE
     Indication: Product used for unknown indication
     Dosage: INTO EACH NOSTRIL
     Route: 045
     Dates: start: 20220816
  3. BENZOYL PEROXIDE [Concomitant]
     Active Substance: BENZOYL PEROXIDE
     Indication: Product used for unknown indication
     Dosage: APPLY AS DIRECTED
     Route: 065
     Dates: start: 20220816
  4. BISOPROLOL [Concomitant]
     Active Substance: BISOPROLOL
     Indication: Product used for unknown indication
     Route: 065
     Dates: start: 20220816
  5. CAPSAICIN [Concomitant]
     Active Substance: CAPSAICIN
     Indication: Product used for unknown indication
     Route: 065
     Dates: start: 20220816
  6. COCODAMOL [Concomitant]
     Active Substance: ACETAMINOPHEN\CODEINE PHOSPHATE
     Indication: Product used for unknown indication
     Dosage: AS REQUIRED
     Route: 065
     Dates: start: 20221128, end: 20221205
  7. CO-MAGALDROX [Concomitant]
     Indication: Product used for unknown indication
     Dosage: AS NECESSARY
     Route: 048
     Dates: start: 20220816
  8. DALACIN [Concomitant]
     Indication: Product used for unknown indication
     Route: 065
     Dates: start: 20220816
  9. DESMOPRESSIN [Concomitant]
     Active Substance: DESMOPRESSIN
     Indication: Product used for unknown indication
     Dosage: UP TO 4 X DAILY
     Route: 065
     Dates: start: 20220816
  10. EMLA [Concomitant]
     Active Substance: LIDOCAINE\PRILOCAINE
     Indication: Product used for unknown indication
     Dosage: APPLY AS DIRECTED
     Route: 065
     Dates: start: 20221206
  11. FINASTERIDE [Concomitant]
     Active Substance: FINASTERIDE
     Indication: Product used for unknown indication
     Route: 065
     Dates: start: 20220816
  12. FLUCLOXACILLIN [Concomitant]
     Active Substance: FLUCLOXACILLIN
     Indication: Product used for unknown indication
     Route: 065
     Dates: start: 20221128, end: 20221205
  13. BUTYLSCOPOLAMINE BROMIDE [Concomitant]
     Active Substance: BUTYLSCOPOLAMINE BROMIDE
     Indication: Product used for unknown indication
     Dosage: AS REQUIRED
     Route: 065
     Dates: start: 20220816
  14. LANSOPRAZOLE [Concomitant]
     Active Substance: LANSOPRAZOLE
     Indication: Product used for unknown indication
     Route: 065
     Dates: start: 20220816
  15. LOPERAMIDE [Concomitant]
     Active Substance: LOPERAMIDE
     Indication: Product used for unknown indication
     Dosage: TAKE AS DIRECTED.
     Route: 065
     Dates: start: 20220816
  16. LORATADINE [Concomitant]
     Active Substance: LORATADINE
     Indication: Product used for unknown indication
     Route: 065
     Dates: start: 20220816
  17. OTOMIZE [Concomitant]
     Indication: Product used for unknown indication
     Dosage: USE 2-3 TIMES A DAY
     Route: 065
     Dates: start: 20221103, end: 20221117
  18. PROCHLORPERAZINE [Concomitant]
     Active Substance: PROCHLORPERAZINE
     Indication: Product used for unknown indication
     Dosage: AS REQUIRED
     Route: 065
     Dates: start: 20220816
  19. UREA [Concomitant]
     Active Substance: UREA
     Indication: Pruritus
     Dosage: IF REQUIRED
     Route: 065
     Dates: start: 20221207
  20. XYLOPROCT [Concomitant]
     Indication: Product used for unknown indication
     Dosage: APPLY AS NEEDED
     Route: 065
     Dates: start: 20221207

REACTIONS (2)
  - Skin ulcer [Recovered/Resolved]
  - Anal ulcer [Recovered/Resolved]
